FAERS Safety Report 6541997-3 (Version None)
Quarter: 2010Q1

REPORT INFORMATION
  Report Type: 
  Country: None (occurrence: None)
  Receive Date: 20100119
  Receipt Date: 20100118
  Transmission Date: 20100710
  Serious: Yes (Other)
  Sender: FDA-Public Use
  Company Number: IT-ROCHE-671404

PATIENT
  Sex: Female

DRUGS (2)
  1. HERCEPTIN [Suspect]
     Indication: BREAST CANCER
     Dosage: REPORTED FREQUENCY: CYCLE
     Route: 042
     Dates: start: 20091026, end: 20091026
  2. CIPROXIN [Concomitant]
     Route: 048
     Dates: start: 20091026, end: 20091031

REACTIONS (1)
  - THROMBOCYTOPENIA [None]
